FAERS Safety Report 5694430-8 (Version None)
Quarter: 2008Q2

REPORT INFORMATION
  Report Type: 
  Country: None (occurrence: None)
  Receive Date: 20080404
  Receipt Date: 20080327
  Transmission Date: 20081010
  Serious: Yes (Other)
  Sender: FDA-Public Use
  Company Number: US-BAYER-200811203BCC

PATIENT
  Age: 74 Year
  Sex: Female

DRUGS (3)
  1. ASPIRIN [Suspect]
     Indication: CORONARY ARTERIAL STENT INSERTION
  2. PLAVIX [Suspect]
     Indication: CORONARY ARTERIAL STENT INSERTION
     Dosage: AS USED: 600 MG  UNIT DOSE: 600 MG
     Dates: start: 20071217, end: 20071217
  3. PLAVIX [Suspect]
     Dates: start: 20071218

REACTIONS (5)
  - ANGIOEDEMA [None]
  - DRY MOUTH [None]
  - PRURITUS [None]
  - THROAT TIGHTNESS [None]
  - URTICARIA [None]
